FAERS Safety Report 9507388 (Version 1)
Quarter: 2013Q1

REPORT INFORMATION
  Report Type: Spontaneous
  Country: US (occurrence: None)
  Receive Date: 20130305
  Receipt Date: 20130305
  Transmission Date: 20140127
  Serious: Yes (Disabling)
  Sender: FDA-Public Use
  Company Number: 163-21880-11060332

PATIENT
  Age: 61 Year
  Sex: Male
  Weight: 117.5 kg

DRUGS (19)
  1. REVLIMID (LENALIDOMIDE) (15 MILLIGRAM, CAPSULES) [Suspect]
     Indication: PLASMA CELL MYELOMA
     Route: 048
     Dates: start: 20110302
  2. DEXAMETHASONE [Concomitant]
  3. LANTUS (INSULIN GLARGINE) [Concomitant]
  4. METFORMIN [Concomitant]
  5. ACTOS (PIOGLITAZONE) [Concomitant]
  6. BENICAR (OLMESARTAN MEDOXOMIL) [Concomitant]
  7. TRILEPTAL (OXCARBAZEPINE) [Concomitant]
  8. METANX [Concomitant]
  9. LIPITOR (ATORVASTATIN) [Concomitant]
  10. NEXIUM [Concomitant]
  11. PRESERVISION OPHTHALMIC VITAMIN (PYRIDOXINE HYDROCHLORIDE) [Concomitant]
  12. FLOMAX [Concomitant]
  13. FESO4 (FERROUS SULFATE) [Concomitant]
  14. FUROSEMIDE [Concomitant]
  15. ASA (ACETYLSALICYLIC ACID) [Concomitant]
  16. ACYCLOVIR (ACICLOVIR) [Concomitant]
  17. PERCOCET (OXYCOCET) [Concomitant]
  18. VELCADE (BORTEZOMIB) [Concomitant]
  19. ZOMETA (ZOLEDRONIC ACID) [Concomitant]

REACTIONS (1)
  - Neuropathy peripheral [None]
